FAERS Safety Report 20081334 (Version 2)
Quarter: 2021Q4

REPORT INFORMATION
  Report Type: Spontaneous
  Country: US (occurrence: US)
  Receive Date: 20211117
  Receipt Date: 20211203
  Transmission Date: 20220303
  Serious: No
  Sender: FDA-Public Use
  Company Number: US-BEH-2021138247

PATIENT
  Age: 80 Year
  Sex: Female
  Weight: 71.655 kg

DRUGS (1)
  1. HIZENTRA [Suspect]
     Active Substance: HUMAN IMMUNOGLOBULIN G
     Indication: Product used for unknown indication
     Dosage: UNK
     Route: 065
     Dates: start: 2006

REACTIONS (4)
  - Pruritus [Unknown]
  - Swelling [Unknown]
  - Recalled product administered [Unknown]
  - Recalled product administered [Unknown]
